FAERS Safety Report 4343959-3 (Version None)
Quarter: 2004Q2

REPORT INFORMATION
  Report Type: 
  Country: None (occurrence: None)
  Receive Date: 20040422
  Receipt Date: 20040119
  Transmission Date: 20050107
  Serious: Yes (Other)
  Sender: FDA-Public Use
  Company Number: US-ROCHE-356576

PATIENT
  Age: 43 Year
  Sex: Male
  Weight: 82.6 kg

DRUGS (9)
  1. PEGASYS [Suspect]
     Indication: HEPATITIS C
     Route: 058
     Dates: start: 20030115
  2. REBETOL [Suspect]
     Indication: HEPATITIS C
     Route: 048
     Dates: start: 20030115
  3. OXYCONTIN [Concomitant]
     Dosage: 60MG IN THE MORNING AND 40MG IN THE EVENING. FREQUENCY NOT PROVIDED.
     Route: 048
  4. WELLBUTRIN [Concomitant]
     Dosage: REPORTED AS WELLBUTRIN DARGGESIC
  5. LEXAPRO [Concomitant]
  6. ZANTAC [Concomitant]
  7. CLONIDINE [Concomitant]
  8. PHENERGAN [Concomitant]
  9. DURAGESIC [Concomitant]

REACTIONS (7)
  - ANGER [None]
  - CONFUSIONAL STATE [None]
  - DEPRESSION [None]
  - FACIAL PALSY [None]
  - HYPOACUSIS [None]
  - LOSS OF CONSCIOUSNESS [None]
  - WEIGHT DECREASED [None]
